FAERS Safety Report 14631551 (Version 1)
Quarter: 2018Q1

REPORT INFORMATION
  Report Type: Spontaneous
  Country: US (occurrence: US)
  Receive Date: 20180313
  Receipt Date: 20180313
  Transmission Date: 20180509
  Serious: Yes (Death, Hospitalization, Other)
  Sender: FDA-Public Use
  Company Number: US-RECORDATI RARE DISEASES INC.-US-R13005-18-00065

PATIENT
  Age: 27 Year
  Sex: Male

DRUGS (2)
  1. OPIOID [Concomitant]
     Active Substance: UNSPECIFIED INGREDIENT
     Indication: PRODUCT USED FOR UNKNOWN INDICATION
     Route: 065
  2. METHAMPHETAMINE [Suspect]
     Active Substance: METHAMPHETAMINE
     Indication: PRODUCT USED FOR UNKNOWN INDICATION
     Route: 065

REACTIONS (10)
  - Pneumatosis intestinalis [Unknown]
  - Ascites [Unknown]
  - Explorative laparotomy [Unknown]
  - Cardiac arrest [Fatal]
  - Brain injury [Fatal]
  - Intestinal ischaemia [Unknown]
  - Small intestinal resection [Unknown]
  - Hepatic failure [Unknown]
  - Abdominal abscess [Unknown]
  - Colectomy [Unknown]
